FAERS Safety Report 8050855-7 (Version None)
Quarter: 2012Q1

REPORT INFORMATION
  Report Type: 
  Country: None (occurrence: None)
  Receive Date: 20120117
  Receipt Date: 20120105
  Transmission Date: 20120608
  Serious: Yes (Other)
  Sender: FDA-Public Use
  Company Number: PHHY2012TR001588

PATIENT
  Age: 48 Year
  Sex: Female

DRUGS (3)
  1. LETROZOLE [Suspect]
     Indication: BREAST CANCER
     Dosage: UNK UKN, UNK
  2. IBANDRONATE SODIUM [Concomitant]
     Dosage: UNK UKN, UNK
  3. CHEMOTHERAPEUTICS [Concomitant]
     Dosage: UNK UKN, UNK

REACTIONS (5)
  - WAIST CIRCUMFERENCE INCREASED [None]
  - BREAST CANCER METASTATIC [None]
  - URINARY INCONTINENCE [None]
  - LEIOMYOMA [None]
  - CONCOMITANT DISEASE PROGRESSION [None]
